FAERS Safety Report 6185712-4 (Version None)
Quarter: 2009Q2

REPORT INFORMATION
  Report Type: 
  Country: None (occurrence: None)
  Receive Date: 20090507
  Receipt Date: 20090420
  Transmission Date: 20091009
  Serious: Yes (Death, Life-Threatening, Hospitalization, Other)
  Sender: FDA-Public Use
  Company Number: A-US2009-24949

PATIENT
  Age: 48 Year
  Sex: Male
  Weight: 88.4 kg

DRUGS (6)
  1. TRACLEER [Suspect]
     Indication: PULMONARY ARTERIAL HYPERTENSION
     Dosage: ORAL
     Route: 048
  2. VENTAVIS (ILOPROST) INHALATION VAPOUR [Concomitant]
  3. ENALAPRIL (HYDROCHLOROTHIAZIDE, ENALAPRIL MALEATE) [Concomitant]
  4. FUROSEMIDE (FUROSEMIDE SODIUM) [Concomitant]
  5. ASPIRIN [Concomitant]
  6. COLCHICINE (COLCHICINE) [Concomitant]

REACTIONS (23)
  - ALANINE AMINOTRANSFERASE INCREASED [None]
  - ASPARTATE AMINOTRANSFERASE INCREASED [None]
  - BLOOD ALKALINE PHOSPHATASE INCREASED [None]
  - BLOOD CREATINE PHOSPHOKINASE MB INCREASED [None]
  - BRAIN NATRIURETIC PEPTIDE INCREASED [None]
  - DEPRESSED LEVEL OF CONSCIOUSNESS [None]
  - DIALYSIS [None]
  - DIARRHOEA [None]
  - DISSEMINATED INTRAVASCULAR COAGULATION [None]
  - GASTROINTESTINAL HAEMORRHAGE [None]
  - HEART RATE INCREASED [None]
  - HEART RATE IRREGULAR [None]
  - HYPOTENSION [None]
  - HYPOTHERMIA [None]
  - INJECTION SITE HAEMORRHAGE [None]
  - INTERNATIONAL NORMALISED RATIO INCREASED [None]
  - LIPASE INCREASED [None]
  - METABOLIC ACIDOSIS [None]
  - RENAL FAILURE ACUTE [None]
  - RESPIRATORY FAILURE [None]
  - SEPSIS [None]
  - SHOCK [None]
  - TROPONIN INCREASED [None]
